FAERS Safety Report 5093974-X (Version None)
Quarter: 2006Q3

REPORT INFORMATION
  Report Type: 
  Country: None (occurrence: None)
  Receive Date: 20060831
  Receipt Date: 20060822
  Transmission Date: 20061208
  Serious: Yes (Hospitalization)
  Sender: FDA-Public Use
  Company Number: 2006CG01386

PATIENT
  Age: 79 Year
  Sex: Female

DRUGS (11)
  1. TENORMIN [Suspect]
     Indication: ESSENTIAL HYPERTENSION
     Route: 048
     Dates: end: 20060626
  2. MIANSERINE [Suspect]
     Route: 048
     Dates: end: 20060626
  3. ASPIRIN [Suspect]
     Indication: ACUTE MYOCARDIAL INFARCTION
     Route: 048
     Dates: end: 20060627
  4. TAHOR [Suspect]
     Route: 048
     Dates: end: 20060626
  5. REMINYL [Suspect]
     Indication: PRESENILE DEMENTIA
     Route: 048
     Dates: end: 20060627
  6. OXEOL [Suspect]
     Route: 048
     Dates: end: 20060626
  7. METFORMIN [Suspect]
     Dates: end: 20060626
  8. APROVEL [Suspect]
     Dates: end: 20060626
  9. ANAFRANIL [Suspect]
     Dates: end: 20060626
  10. PNEUMOREL [Suspect]
     Dates: end: 20060626
  11. ALDACTONE [Suspect]
     Dates: end: 20060627

REACTIONS (3)
  - ATRIAL FIBRILLATION [None]
  - HYPOKALAEMIA [None]
  - RENAL FAILURE [None]
